FAERS Safety Report 5119744-1 (Version None)
Quarter: 2006Q4

REPORT INFORMATION
  Report Type: 
  Country: None (occurrence: None)
  Receive Date: 20061003
  Receipt Date: 20060811
  Transmission Date: 20070319
  Serious: Yes (Other)
  Sender: FDA-Public Use
  Company Number: DE-BRISTOL-MYERS SQUIBB COMPANY-13478334

PATIENT
  Age: 70 Year
  Sex: Female
  Weight: 52 kg

DRUGS (7)
  1. ABILIFY [Suspect]
     Indication: SCHIZOPHRENIA, PARANOID TYPE
     Dates: start: 20060710
  2. MARCUMAR [Concomitant]
     Indication: DEEP VEIN THROMBOSIS
     Dosage: DOSE VALUE 1/2-1-1/2-1/2-1-1/2. TEMPORARILY DISCONTINUED 08/08/06-08/13/06.
  3. TIMONIL RETARD [Concomitant]
     Dates: start: 20060804, end: 20060810
  4. SOLIAN [Concomitant]
     Indication: SCHIZOPHRENIA, PARANOID TYPE
  5. AKINETON [Concomitant]
     Indication: EXTRAPYRAMIDAL DISORDER
  6. TRIAMTERENE AND HYDROCHLOROTHIAZIDE [Concomitant]
     Indication: OEDEMA PERIPHERAL
     Dates: start: 20060623
  7. LACTULOSE [Concomitant]
     Indication: CONSTIPATION
     Dates: start: 20060718

REACTIONS (2)
  - COAGULOPATHY [None]
  - PROTHROMBIN TIME PROLONGED [None]
